FAERS Safety Report 8076532-4 (Version None)
Quarter: 2012Q1

REPORT INFORMATION
  Report Type: 
  Country: None (occurrence: None)
  Receive Date: 20120127
  Receipt Date: 20120116
  Transmission Date: 20120608
  Serious: Yes (Other)
  Sender: FDA-Public Use
  Company Number: US-JNJFOC-20120106157

PATIENT
  Sex: Female
  Weight: 84.37 kg

DRUGS (9)
  1. REMICADE [Suspect]
     Route: 042
     Dates: start: 20120110
  2. REMICADE [Suspect]
     Indication: RHEUMATOID ARTHRITIS
     Route: 042
  3. ACETAMINOPHEN [Concomitant]
     Indication: PREMEDICATION
     Route: 048
  4. METHOTREXATE [Concomitant]
     Route: 065
  5. VITAMIN D [Concomitant]
     Route: 048
  6. BENADRYL [Concomitant]
     Indication: PREMEDICATION
     Route: 048
  7. LISINOPRIL [Concomitant]
     Indication: BLOOD PRESSURE
     Route: 048
  8. FOLIC ACID [Concomitant]
     Route: 048
  9. CALCIUM [Concomitant]
     Route: 048

REACTIONS (6)
  - PARAESTHESIA [None]
  - DIZZINESS [None]
  - ERYTHEMA [None]
  - HERPES SIMPLEX [None]
  - INFUSION RELATED REACTION [None]
  - SWOLLEN TONGUE [None]
